FAERS Safety Report 9211776 (Version 1)
Quarter: 2013Q2

REPORT INFORMATION
  Report Type: Spontaneous
  Country: US (occurrence: US)
  Receive Date: 20130404
  Receipt Date: 20130404
  Transmission Date: 20140414
  Serious: No
  Sender: FDA-Public Use
  Company Number: US-AMGEN-USASP2013022589

PATIENT
  Age: 33 Year
  Sex: Male

DRUGS (4)
  1. ENBREL [Suspect]
     Indication: PSORIASIS
     Dosage: UNK MG, UNK
     Dates: start: 20020611, end: 2005
  2. METHOTREXATE [Concomitant]
     Dosage: UNK UNK, QWK
  3. HUMIRA [Concomitant]
     Dosage: UNK
  4. STELARA [Concomitant]
     Dosage: UNK

REACTIONS (5)
  - Therapeutic response decreased [Not Recovered/Not Resolved]
  - Arthralgia [Not Recovered/Not Resolved]
  - Chest pain [Recovered/Resolved]
  - Influenza [Recovered/Resolved]
  - Psoriasis [Not Recovered/Not Resolved]
